FAERS Safety Report 18786398 (Version 1)
Quarter: 2021Q1

REPORT INFORMATION
  Report Type: Other
  Country: US (occurrence: US)
  Receive Date: 20210125
  Receipt Date: 20210125
  Transmission Date: 20210419
  Serious: No
  Sender: FDA-Public Use
  Company Number: US-ACORDA-ACO_163474_2020

PATIENT
  Age: 66 Year
  Sex: Female

DRUGS (4)
  1. AMPYRA [Suspect]
     Active Substance: DALFAMPRIDINE
     Indication: GAIT DISTURBANCE
     Dosage: ONE, QD
     Route: 065
  2. AMPYRA [Suspect]
     Active Substance: DALFAMPRIDINE
     Dosage: ONE  BID
     Route: 065
  3. TYSABRI [Suspect]
     Active Substance: NATALIZUMAB
     Indication: MULTIPLE SCLEROSIS
     Dosage: UNK
     Route: 065
     Dates: start: 20190416
  4. TYSABRI [Suspect]
     Active Substance: NATALIZUMAB
     Dosage: UNK

REACTIONS (2)
  - Tremor [Not Recovered/Not Resolved]
  - Inappropriate schedule of product administration [Recovered/Resolved]

NARRATIVE: CASE EVENT DATE: 20200121
